FAERS Safety Report 19283368 (Version 1)
Quarter: 2021Q2

REPORT INFORMATION
  Report Type: Spontaneous
  Country: US (occurrence: US)
  Receive Date: 20210521
  Receipt Date: 20210521
  Transmission Date: 20210717
  Serious: Yes (Other)
  Sender: FDA-Public Use
  Company Number: US-ROCHE-2834058

PATIENT
  Sex: Male

DRUGS (2)
  1. ASPIRIN 81 [Concomitant]
     Active Substance: ASPIRIN
  2. ESBRIET [Suspect]
     Active Substance: PIRFENIDONE
     Indication: IDIOPATHIC PULMONARY FIBROSIS
     Dosage: TAKE 2 TABLET BY MOUTH THREE TIMES A DAY WITH MEAL
     Route: 048
     Dates: start: 202103

REACTIONS (1)
  - Lung neoplasm malignant [Recovered/Resolved]
